FAERS Safety Report 7665352-8 (Version None)
Quarter: 2011Q3

REPORT INFORMATION
  Report Type: 
  Country: None (occurrence: None)
  Receive Date: 20110806
  Receipt Date: 20110302
  Transmission Date: 20111222
  Serious: No
  Sender: FDA-Public Use
  Company Number: US-ABBOTT-11P-163-0709605-00

PATIENT
  Sex: Female
  Weight: 88.076 kg

DRUGS (9)
  1. METOPROLOL TARTRATE [Concomitant]
     Indication: PRODUCT USED FOR UNKNOWN INDICATION
     Route: 048
  2. POTASSIUM [Concomitant]
     Indication: PRODUCT USED FOR UNKNOWN INDICATION
     Route: 048
  3. FUROSEMIDE [Concomitant]
     Indication: PRODUCT USED FOR UNKNOWN INDICATION
     Route: 048
  4. ENALAPRIL MALEATE [Concomitant]
     Indication: PRODUCT USED FOR UNKNOWN INDICATION
     Route: 048
  5. FERROUS SULFATE TAB [Concomitant]
     Indication: PRODUCT USED FOR UNKNOWN INDICATION
  6. ASPIRIN [Concomitant]
     Indication: PRODUCT USED FOR UNKNOWN INDICATION
     Dosage: TAKES WITH NIASPAN
     Route: 048
  7. CARTIA XT [Concomitant]
     Indication: HYPERTENSION
     Route: 048
  8. NIASPAN [Suspect]
     Indication: BLOOD CHOLESTEROL INCREASED
     Dosage: AT HOUR OF SLEEP
     Route: 048
     Dates: start: 20110301
  9. METOPROLOL TARTRATE [Concomitant]
     Route: 048

REACTIONS (6)
  - NERVOUSNESS [None]
  - MIDDLE INSOMNIA [None]
  - PARAESTHESIA [None]
  - HEART RATE INCREASED [None]
  - FLUSHING [None]
  - TREMOR [None]
